FAERS Safety Report 12338408 (Version 1)
Quarter: 2016Q2

REPORT INFORMATION
  Report Type: Spontaneous
  Country: AU (occurrence: AU)
  Receive Date: 20160505
  Receipt Date: 20160505
  Transmission Date: 20160815
  Serious: Yes (Other)
  Sender: FDA-Public Use
  Company Number: AU-ROCHE-1746787

PATIENT
  Age: 59 Year
  Sex: Female

DRUGS (6)
  1. DOXORUBICIN [Concomitant]
     Active Substance: DOXORUBICIN
     Dosage: Q21 X 4?60/600 MG/M2
     Route: 065
  2. CYCLOPHOSPHAMIDE. [Concomitant]
     Active Substance: CYCLOPHOSPHAMIDE
     Dosage: Q21 X 4?60/600 MG/M2
     Route: 065
  3. PACLITAXEL. [Suspect]
     Active Substance: PACLITAXEL
     Indication: BREAST CANCER
     Dosage: Q7 X 12
     Route: 065
  4. TRASTUZUMAB EMTANSINE [Suspect]
     Active Substance: ADO-TRASTUZUMAB EMTANSINE
     Indication: BREAST CANCER
     Route: 065
  5. TRASTUZUMAB [Suspect]
     Active Substance: TRASTUZUMAB
     Indication: BREAST CANCER
     Route: 065
  6. DEXAMETHASONE. [Concomitant]
     Active Substance: DEXAMETHASONE

REACTIONS (12)
  - Balance disorder [Unknown]
  - Brain midline shift [Unknown]
  - Intracranial mass [Unknown]
  - Ataxia [Unknown]
  - Brain herniation [Unknown]
  - Neuropathy peripheral [Unknown]
  - Hydrocephalus [Unknown]
  - Nausea [Unknown]
  - Headache [Unknown]
  - Vertigo [Unknown]
  - Blood bilirubin increased [Unknown]
  - Fall [Unknown]

NARRATIVE: CASE EVENT DATE: 201511
